FAERS Safety Report 4752139-9 (Version None)
Quarter: 2005Q3

REPORT INFORMATION
  Report Type: 
  Country: None (occurrence: None)
  Receive Date: 20050825
  Receipt Date: 20050513
  Transmission Date: 20060218
  Serious: Yes (Other)
  Sender: FDA-Public Use
  Company Number: US-RB-1625-2005

PATIENT
  Sex: Female

DRUGS (4)
  1. SUBOXONE [Suspect]
     Indication: DRUG DEPENDENCE
     Route: 060
     Dates: start: 20040505, end: 20050125
  2. BUPRENORPHINE HCL [Suspect]
     Indication: DRUG DEPENDENCE
     Route: 060
     Dates: start: 20050126, end: 20050302
  3. SUBOXONE [Suspect]
     Route: 060
     Dates: start: 20050303
  4. VENLAFAXINE HCL [Concomitant]
     Indication: DEPRESSION
     Dosage: 26-JAN-2005: DR. ADVISED PT. TO TAPER DOSE BY 37.5 MGS. EVERY THIRD DAY - PT. RETURNED 225 ON 1-FEB-
     Route: 048
     Dates: start: 20040505

REACTIONS (4)
  - ABORTION SPONTANEOUS [None]
  - DRUG EXPOSURE DURING PREGNANCY [None]
  - PREGNANCY [None]
  - TREATMENT NONCOMPLIANCE [None]
